FAERS Safety Report 8213129-7 (Version None)
Quarter: 2012Q1

REPORT INFORMATION
  Report Type: 
  Country: None (occurrence: None)
  Receive Date: 20120315
  Receipt Date: 20120307
  Transmission Date: 20120608
  Serious: Yes (Hospitalization)
  Sender: FDA-Public Use
  Company Number: US-US-EMD SERONO, INC.-7118114

PATIENT
  Sex: Female

DRUGS (1)
  1. REBIF [Suspect]
     Indication: PRODUCT USED FOR UNKNOWN INDICATION
     Route: 058
     Dates: start: 20090302

REACTIONS (6)
  - CENTRAL NERVOUS SYSTEM LESION [None]
  - HEADACHE [None]
  - OOPHORECTOMY [None]
  - PARAESTHESIA [None]
  - CONSTIPATION [None]
  - DRUG HYPERSENSITIVITY [None]
